FAERS Safety Report 10517439 (Version 1)
Quarter: 2014Q4

REPORT INFORMATION
  Report Type: Spontaneous
  Country: RU (occurrence: RU)
  Receive Date: 20141014
  Receipt Date: 20141014
  Transmission Date: 20150528
  Serious: Yes (Death, Life-Threatening)
  Sender: FDA-Public Use
  Company Number: RU-ABBVIE-14P-251-1294524-00

PATIENT
  Age: 11 Year

DRUGS (1)
  1. ULTANE [Suspect]
     Active Substance: SEVOFLURANE
     Indication: GENERAL ANAESTHESIA
     Route: 065
     Dates: start: 20141012

REACTIONS (2)
  - Tachycardia [Fatal]
  - Hyperthermia [Fatal]

NARRATIVE: CASE EVENT DATE: 20141012
